FAERS Safety Report 12837073 (Version 1)
Quarter: 2016Q4

REPORT INFORMATION
  Report Type: Spontaneous
  Country: US (occurrence: US)
  Receive Date: 20161011
  Receipt Date: 20161011
  Transmission Date: 20170207
  Serious: Yes (Death, Hospitalization, Other)
  Sender: FDA-Public Use
  Company Number: US-TEVA-699215USA

PATIENT
  Age: 58 Year
  Sex: Male

DRUGS (2)
  1. ASPIRIN. [Concomitant]
     Active Substance: ASPIRIN
     Route: 065
  2. WARFARIN [Suspect]
     Active Substance: WARFARIN
     Route: 065

REACTIONS (4)
  - Haemorrhagic arteriovenous malformation [Not Recovered/Not Resolved]
  - Anaemia [Recovering/Resolving]
  - Respiratory failure [Fatal]
  - Melaena [Not Recovered/Not Resolved]
